FAERS Safety Report 5483677-1 (Version None)
Quarter: 2007Q4

REPORT INFORMATION
  Report Type: 
  Country: None (occurrence: None)
  Receive Date: 20071009
  Receipt Date: 20071009
  Transmission Date: 20080405
  Serious: Yes (Hospitalization)
  Sender: FDA-Public Use
  Company Number: None

PATIENT

DRUGS (2)
  1. CADUET [Suspect]
  2. LISINOPRIL [Suspect]

REACTIONS (2)
  - DYSPHAGIA [None]
  - WEIGHT DECREASED [None]
